FAERS Safety Report 8791527 (Version 1)
Quarter: 2012Q4

REPORT INFORMATION
  Report Type: Spontaneous
  Country: US (occurrence: None)
  Receive Date: 20120914
  Receipt Date: 20120914
  Transmission Date: 20130627
  Serious: Yes (Other)
  Sender: FDA-Public Use
  Company Number: None

PATIENT
  Age: 41 Year
  Sex: Female
  Weight: 54.43 kg

DRUGS (1)
  1. BOTOX [Suspect]
     Indication: SKIN COSMETIC PROCEDURE
     Dosage: 16-20 units
     Dates: start: 20120819, end: 20120819

REACTIONS (5)
  - Paraesthesia [None]
  - Burning sensation [None]
  - Anxiety [None]
  - Abdominal pain upper [None]
  - Dizziness [None]
